FAERS Safety Report 9314345 (Version 2)
Quarter: 2013Q3

REPORT INFORMATION
  Report Type: Report from Study
  Country: US (occurrence: US)
  Receive Date: 20130529
  Receipt Date: 20130710
  Transmission Date: 20140515
  Serious: Yes (Other)
  Sender: FDA-Public Use
  Company Number: US-ELI_LILLY_AND_COMPANY-US201305005344

PATIENT
  Age: 48 Year
  Sex: Male
  Weight: 84.81 kg

DRUGS (41)
  1. OLANZAPINE LONG-ACTING IM [Suspect]
     Dosage: 405 MG, UNK
     Dates: start: 20110321
  2. OLANZAPINE LONG-ACTING IM [Suspect]
     Dosage: 405 MG, UNK
     Dates: start: 20110418
  3. OLANZAPINE LONG-ACTING IM [Suspect]
     Dosage: 405 MG, UNK
     Dates: start: 20110516
  4. OLANZAPINE LONG-ACTING IM [Suspect]
     Dosage: 405 MG, UNK
     Dates: start: 20110613
  5. OLANZAPINE LONG-ACTING IM [Suspect]
     Dosage: 405 MG, UNK
     Dates: start: 20110711
  6. OLANZAPINE LONG-ACTING IM [Suspect]
     Dosage: 405 MG, UNK
     Dates: start: 20110808
  7. OLANZAPINE LONG-ACTING IM [Suspect]
     Dosage: 405 MG, UNK
     Dates: start: 20110902
  8. OLANZAPINE LONG-ACTING IM [Suspect]
     Dosage: 405 MG, UNK
     Dates: start: 20111003
  9. OLANZAPINE LONG-ACTING IM [Suspect]
     Dosage: 405 MG, UNK
     Dates: start: 20111031
  10. OLANZAPINE LONG-ACTING IM [Suspect]
     Dosage: 405 MG, UNK
     Dates: start: 20111128
  11. OLANZAPINE LONG-ACTING IM [Suspect]
     Dosage: 405 MG, UNK
     Dates: start: 20111223
  12. OLANZAPINE LONG-ACTING IM [Suspect]
     Dosage: 405 MG, UNK
     Dates: start: 20120120
  13. OLANZAPINE LONG-ACTING IM [Suspect]
     Dosage: 405 MG, UNK
     Dates: start: 20120217
  14. OLANZAPINE LONG-ACTING IM [Suspect]
     Dosage: 405 MG, UNK
     Dates: start: 20120316
  15. OLANZAPINE LONG-ACTING IM [Suspect]
     Dosage: 405 MG, UNK
     Dates: start: 20120413
  16. OLANZAPINE LONG-ACTING IM [Suspect]
     Dosage: 405 MG, UNK
     Dates: start: 20120511
  17. OLANZAPINE LONG-ACTING IM [Suspect]
     Dosage: 405 MG, UNK
     Dates: start: 20120608
  18. OLANZAPINE LONG-ACTING IM [Suspect]
     Dosage: 405 MG, UNK
     Dates: start: 20120706
  19. OLANZAPINE LONG-ACTING IM [Suspect]
     Dosage: 405 MG, UNK
     Dates: start: 20120803
  20. OLANZAPINE LONG-ACTING IM [Suspect]
     Dosage: 405 MG, UNK
     Dates: start: 20120831
  21. OLANZAPINE LONG-ACTING IM [Suspect]
     Dosage: 405 MG, UNK
     Dates: start: 20120928
  22. OLANZAPINE LONG-ACTING IM [Suspect]
     Dosage: 405 MG, UNK
     Dates: start: 20121026
  23. OLANZAPINE LONG-ACTING IM [Suspect]
     Dosage: 405 MG, UNK
     Dates: start: 20121126
  24. OLANZAPINE LONG-ACTING IM [Suspect]
     Dosage: 405 MG, UNK
     Dates: start: 20121221
  25. OLANZAPINE LONG-ACTING IM [Suspect]
     Dosage: 405 MG, UNK
     Dates: start: 20130118
  26. OLANZAPINE LONG-ACTING IM [Suspect]
     Dosage: 405 MG, UNK
     Dates: start: 20130215
  27. OLANZAPINE LONG-ACTING IM [Suspect]
     Dosage: 405 MEQ, UNK
     Dates: start: 20130315
  28. OLANZAPINE LONG-ACTING IM [Suspect]
     Dosage: 405 MG, UNK
     Dates: start: 20130412
  29. OLANZAPINE LONG-ACTING IM [Suspect]
     Dosage: 405 MG, UNK
     Dates: start: 20130513
  30. SIMVASTATIN [Concomitant]
     Indication: BLOOD CHOLESTEROL INCREASED
     Dosage: 80 MG, QD
     Route: 048
     Dates: start: 20110411
  31. ASA [Concomitant]
     Indication: SUPPLEMENTATION THERAPY
     Dosage: 81 MG, QD
     Route: 048
     Dates: start: 20110411
  32. FENOFIBRAT [Concomitant]
     Indication: BLOOD CHOLESTEROL INCREASED
     Dosage: 54 MG, QD
     Route: 048
     Dates: start: 20110411
  33. METFORMIN [Concomitant]
     Indication: DIABETES MELLITUS
     Dosage: 500 MG, BID
     Route: 048
     Dates: start: 20110411
  34. ACETAMINOPHEN [Concomitant]
     Dosage: 500 MG, UNK
     Route: 048
     Dates: start: 20111017
  35. SEROQUEL [Concomitant]
     Indication: SCHIZOAFFECTIVE DISORDER
     Dosage: 200 MG, EACH MORNING
     Route: 048
     Dates: start: 20120717
  36. SEROQUEL [Concomitant]
     Dosage: 600 MG, EACH EVENING
     Route: 048
     Dates: start: 20130415
  37. OMEPRAZOLE [Concomitant]
     Indication: GASTROOESOPHAGEAL REFLUX DISEASE
     Dosage: 20 MG, QD
     Route: 048
     Dates: start: 20130218
  38. FIBER [Concomitant]
     Indication: CONSTIPATION
     Dosage: 625 MG, BID
     Route: 048
     Dates: start: 20130218
  39. COGENTIN [Concomitant]
     Indication: SCHIZOAFFECTIVE DISORDER
     Dosage: 2 MG, BID
     Route: 048
     Dates: start: 20130415
  40. CLONAZEPAM [Concomitant]
     Indication: SCHIZOAFFECTIVE DISORDER
     Dosage: 2 MG, TID
     Route: 048
     Dates: start: 20130415
  41. DOCUSATE SODIUM [Concomitant]
     Dosage: 100 MG, QD
     Route: 048
     Dates: start: 20130422

REACTIONS (6)
  - Dizziness [Recovered/Resolved]
  - Cognitive disorder [Recovered/Resolved]
  - Slow speech [Recovered/Resolved]
  - Gait disturbance [Recovered/Resolved]
  - Dysarthria [Recovered/Resolved]
  - Abulia [Recovered/Resolved]
